FAERS Safety Report 18810796 (Version 4)
Quarter: 2021Q1

REPORT INFORMATION
  Report Type: Spontaneous
  Country: JP (occurrence: JP)
  Receive Date: 20210130
  Receipt Date: 20210308
  Transmission Date: 20210419
  Serious: Yes (Death, Other)
  Sender: FDA-Public Use
  Company Number: JP-009507513-2101JPN002865J

PATIENT
  Age: 82 Year
  Sex: Female

DRUGS (1)
  1. KEYTRUDA [Suspect]
     Active Substance: PEMBROLIZUMAB
     Indication: NON-SMALL CELL LUNG CANCER STAGE IV
     Dosage: 200 MILLIGRAM, Q3W
     Route: 041
     Dates: start: 20201209, end: 20201209

REACTIONS (5)
  - Decubitus ulcer [Unknown]
  - Decreased appetite [Unknown]
  - Pyrexia [Recovered/Resolved]
  - Malignant neoplasm progression [Fatal]
  - Malaise [Unknown]

NARRATIVE: CASE EVENT DATE: 202012
